FAERS Safety Report 23264174 (Version 1)
Quarter: 2023Q4

REPORT INFORMATION
  Report Type: Spontaneous
  Country: CN (occurrence: CN)
  Receive Date: 20231205
  Receipt Date: 20231205
  Transmission Date: 20240110
  Serious: Yes (Other)
  Sender: FDA-Public Use
  Company Number: CN-PFIZER INC-PV202300194765

PATIENT
  Age: 32 Year
  Sex: Female
  Weight: 43.7 kg

DRUGS (6)
  1. METHOTREXATE SODIUM [Suspect]
     Active Substance: METHOTREXATE SODIUM
     Indication: Ectopic pregnancy
     Dosage: 70 MG, 1X/DAY
     Route: 030
     Dates: start: 20231110, end: 20231110
  2. METHOTREXATE SODIUM [Suspect]
     Active Substance: METHOTREXATE SODIUM
     Dosage: 70 MG, 1X/DAY
     Route: 030
     Dates: start: 20231114, end: 20231114
  3. MIFEPRISTONE [Concomitant]
     Active Substance: MIFEPRISTONE
     Indication: Ectopic pregnancy
     Dosage: 25 MG, 2X/DAY
     Route: 048
     Dates: start: 20231108, end: 20231109
  4. VITAMIN B6 [Concomitant]
     Active Substance: PYRIDOXINE HYDROCHLORIDE
     Indication: Antiemetic supportive care
     Dosage: 0.1 G, 1X/DAY
     Route: 041
     Dates: start: 20231110, end: 20231117
  5. VITAMIN C [Concomitant]
     Active Substance: ASCORBIC ACID
     Indication: Therapeutic procedure
     Dosage: 2 G, 1X/DAY
     Route: 041
     Dates: start: 20231114, end: 20231117
  6. IRON SUCROSE [Concomitant]
     Active Substance: IRON SUCROSE
     Indication: Anaemia
     Dosage: 100 MG, 1X/DAY
     Route: 041
     Dates: start: 20231114, end: 20231117

REACTIONS (2)
  - Liver injury [Recovering/Resolving]
  - Off label use [Unknown]

NARRATIVE: CASE EVENT DATE: 20231110
